FAERS Safety Report 18507261 (Version 3)
Quarter: 2021Q2

REPORT INFORMATION
  Report Type: Spontaneous
  Country: ES (occurrence: ES)
  Receive Date: 20201116
  Receipt Date: 20210527
  Transmission Date: 20210717
  Serious: Yes (Hospitalization)
  Sender: FDA-Public Use
  Company Number: ES-TAKEDA-2020TUS050430

PATIENT
  Age: 72 Year
  Sex: Male
  Weight: 66 kg

DRUGS (11)
  1. OBIZUR [Suspect]
     Active Substance: ANTIHEMOPHILIC FACTOR PORCINE, B-DOMAIN TRUNCATED RECOMBINANT
     Indication: PSOAS SIGN
     Dosage: UNK UNK, QD
     Route: 065
  2. OBIZUR [Suspect]
     Active Substance: ANTIHEMOPHILIC FACTOR PORCINE, B-DOMAIN TRUNCATED RECOMBINANT
     Indication: ACQUIRED HAEMOPHILIA
     Dosage: 6500 INTERNATIONAL UNIT/KILOGRAM
     Route: 065
  3. OBIZUR [Suspect]
     Active Substance: ANTIHEMOPHILIC FACTOR PORCINE, B-DOMAIN TRUNCATED RECOMBINANT
     Dosage: 50 INTERNATIONAL UNIT/KILOGRAM
     Route: 065
  4. OBIZUR [Suspect]
     Active Substance: ANTIHEMOPHILIC FACTOR PORCINE, B-DOMAIN TRUNCATED RECOMBINANT
     Indication: PSOAS SIGN
     Dosage: UNK UNK, QD
     Route: 065
  5. OBIZUR [Suspect]
     Active Substance: ANTIHEMOPHILIC FACTOR PORCINE, B-DOMAIN TRUNCATED RECOMBINANT
     Indication: HAEMARTHROSIS
     Dosage: 1000 INTERNATIONAL UNIT/KILOGRAM
     Route: 065
  6. OBIZUR [Suspect]
     Active Substance: ANTIHEMOPHILIC FACTOR PORCINE, B-DOMAIN TRUNCATED RECOMBINANT
     Indication: HAEMARTHROSIS
     Dosage: 1000 INTERNATIONAL UNIT/KILOGRAM
     Route: 065
  7. OBIZUR [Suspect]
     Active Substance: ANTIHEMOPHILIC FACTOR PORCINE, B-DOMAIN TRUNCATED RECOMBINANT
     Dosage: 3000 INTERNATIONAL UNIT/KILOGRAM
     Route: 065
  8. OBIZUR [Suspect]
     Active Substance: ANTIHEMOPHILIC FACTOR PORCINE, B-DOMAIN TRUNCATED RECOMBINANT
     Dosage: 50 INTERNATIONAL UNIT/KILOGRAM
     Route: 065
  9. OBIZUR [Suspect]
     Active Substance: ANTIHEMOPHILIC FACTOR PORCINE, B-DOMAIN TRUNCATED RECOMBINANT
     Dosage: 3000 INTERNATIONAL UNIT/KILOGRAM
     Route: 065
  10. APIXABAN [Concomitant]
     Active Substance: APIXABAN
     Dosage: UNK
     Route: 065
  11. OBIZUR [Suspect]
     Active Substance: ANTIHEMOPHILIC FACTOR PORCINE, B-DOMAIN TRUNCATED RECOMBINANT
     Indication: ACQUIRED HAEMOPHILIA
     Dosage: 6500 INTERNATIONAL UNIT/KILOGRAM
     Route: 065

REACTIONS (1)
  - Hypercoagulation [Unknown]
